FAERS Safety Report 16847850 (Version 1)
Quarter: 2019Q3

REPORT INFORMATION
  Report Type: Other
  Country: US (occurrence: US)
  Receive Date: 20190924
  Receipt Date: 20190924
  Transmission Date: 20191005
  Serious: No
  Sender: FDA-Public Use
  Company Number: US-ACORDA-ACO_160844_2019

PATIENT
  Sex: Male

DRUGS (1)
  1. INBRIJA [Suspect]
     Active Substance: LEVODOPA
     Indication: PARKINSON^S DISEASE
     Dosage: 42 MILLIGRAM, (2 CAPSULES UP TO FIVE TIMES PER DAY), AS NEEDED
     Dates: start: 20190626, end: 20190829

REACTIONS (5)
  - Tremor [Unknown]
  - Hypokinesia [Unknown]
  - Feeling abnormal [Unknown]
  - Condition aggravated [Unknown]
  - Therapy cessation [Unknown]
